FAERS Safety Report 17936827 (Version 3)
Quarter: 2020Q4

REPORT INFORMATION
  Report Type: Spontaneous
  Country: GB (occurrence: GB)
  Receive Date: 20200624
  Receipt Date: 20201204
  Transmission Date: 20210113
  Serious: Yes (Death)
  Sender: FDA-Public Use
  Company Number: GB-TAKEDA-2020TUS027589

PATIENT
  Age: 85 Year
  Sex: Male

DRUGS (5)
  1. DEXAMETHASONE. [Concomitant]
     Active Substance: DEXAMETHASONE
     Indication: PLASMA CELL MYELOMA
     Dosage: UNK
     Route: 065
     Dates: end: 20200416
  2. VELCADE [Suspect]
     Active Substance: BORTEZOMIB
     Indication: PLASMA CELL MYELOMA
     Dosage: 2.47 MILLIGRAM
     Route: 058
     Dates: start: 20151224, end: 20161220
  3. BENDAMUSTINE [Concomitant]
     Active Substance: BENDAMUSTINE
     Indication: PLASMA CELL MYELOMA
     Dosage: UNK
     Route: 065
     Dates: end: 20200416
  4. DARATUMUMAB [Suspect]
     Active Substance: DARATUMUMAB
     Indication: PLASMA CELL MYELOMA
     Dosage: 1248 MILLIGRAM
     Route: 042
     Dates: start: 20151110, end: 20151110
  5. MELPHALAN. [Suspect]
     Active Substance: MELPHALAN
     Indication: PLASMA CELL MYELOMA
     Dosage: 16 MILLIGRAM
     Route: 048
     Dates: start: 20151201, end: 20161220

REACTIONS (1)
  - Disease progression [Fatal]

NARRATIVE: CASE EVENT DATE: 20200518
